FAERS Safety Report 9675706 (Version 1)
Quarter: 2013Q4

REPORT INFORMATION
  Report Type: Report from Study
  Country: US (occurrence: US)
  Receive Date: 20131107
  Receipt Date: 20131107
  Transmission Date: 20140711
  Serious: Yes (Hospitalization, Other)
  Sender: FDA-Public Use
  Company Number: US-ABBVIE-13P-163-1163455-00

PATIENT
  Sex: Female
  Weight: 90.8 kg

DRUGS (10)
  1. HUMIRA [Suspect]
     Indication: RHEUMATOID ARTHRITIS
     Route: 058
     Dates: start: 201204, end: 201304
  2. METOPROLOL [Concomitant]
     Indication: HYPERTENSION
  3. NEXIUM [Concomitant]
     Indication: GASTROOESOPHAGEAL REFLUX DISEASE
  4. ATORVASTATIN [Concomitant]
     Indication: BLOOD CHOLESTEROL INCREASED
  5. SERTRALINE [Concomitant]
     Indication: ANXIETY
  6. SERTRALINE [Concomitant]
     Indication: DEPRESSION
  7. PLAQUENIL [Concomitant]
     Indication: RHEUMATOID ARTHRITIS
  8. ARAVA [Concomitant]
     Indication: RHEUMATOID ARTHRITIS
  9. LORTAB [Concomitant]
     Indication: RHEUMATOID ARTHRITIS
     Dosage: 10/325MG, PRN
  10. LORTAB [Concomitant]
     Indication: FIBROMYALGIA

REACTIONS (9)
  - Blood magnesium decreased [Recovered/Resolved]
  - Blood potassium decreased [Recovered/Resolved]
  - Chest pain [Recovered/Resolved]
  - Coronary artery occlusion [Recovered/Resolved]
  - Drug ineffective [Not Recovered/Not Resolved]
  - Coeliac disease [Recovering/Resolving]
  - Diarrhoea [Recovering/Resolving]
  - Rash [Recovering/Resolving]
  - Fibromyalgia [Not Recovered/Not Resolved]
